FAERS Safety Report 12450043 (Version 2)
Quarter: 2016Q3

REPORT INFORMATION
  Report Type: Spontaneous
  Country: US (occurrence: US)
  Receive Date: 20160609
  Receipt Date: 20160712
  Transmission Date: 20161109
  Serious: Yes (Hospitalization, Other)
  Sender: FDA-Public Use
  Company Number: US-BAUSCH-BL-2016-013071

PATIENT
  Sex: Male

DRUGS (2)
  1. PROVENGE [Suspect]
     Active Substance: SIPULEUCEL-T
     Route: 042
     Dates: start: 20160516, end: 20160516
  2. PROVENGE [Suspect]
     Active Substance: SIPULEUCEL-T
     Indication: PROSTATE CANCER
     Route: 042
     Dates: start: 20160502, end: 20160502

REACTIONS (8)
  - Contusion [Unknown]
  - Inflammatory marker increased [Unknown]
  - Blood alkaline phosphatase increased [Unknown]
  - Haemoglobin decreased [Unknown]
  - Blood lactate dehydrogenase increased [Unknown]
  - Platelet count decreased [Unknown]
  - Blood sodium decreased [Unknown]
  - Weight decreased [Unknown]

NARRATIVE: CASE EVENT DATE: 2016
